FAERS Safety Report 4633468-6 (Version None)
Quarter: 2005Q2

REPORT INFORMATION
  Report Type: 
  Country: None (occurrence: None)
  Receive Date: 20050412
  Receipt Date: 20050331
  Transmission Date: 20051028
  Serious: Yes (Hospitalization)
  Sender: FDA-Public Use
  Company Number: 2005-01110

PATIENT
  Age: 78 Year
  Sex: Female
  Weight: 48.5 kg

DRUGS (5)
  1. PREDNISONE [Suspect]
     Indication: INFLAMMATION
     Dosage: 1 TABLET, TAPER DOSAGE, ORAL
     Route: 048
     Dates: start: 20050218, end: 20050301
  2. PREDNISONE [Suspect]
     Indication: INFLAMMATION
     Dosage: 1 TABLET, TAPER DOSAGE, ORAL
     Route: 048
     Dates: start: 20041110, end: 20050106
  3. HYDROCHLOROTHIAZIDE [Suspect]
     Indication: HYPERTENSION
     Dosage: 1 TABLET, DAILY, ORAL
     Route: 048
     Dates: end: 20050228
  4. TOPROL-XL [Concomitant]
  5. AVAPRO [Concomitant]

REACTIONS (7)
  - BLOOD SODIUM DECREASED [None]
  - ERYTHEMA [None]
  - LIMB DISCOMFORT [None]
  - OEDEMA PERIPHERAL [None]
  - PAIN IN EXTREMITY [None]
  - PNEUMONIA [None]
  - PRURITUS [None]
